FAERS Safety Report 7860655-6 (Version None)
Quarter: 2011Q4

REPORT INFORMATION
  Report Type: 
  Country: None (occurrence: None)
  Receive Date: 20111027
  Receipt Date: 20111012
  Transmission Date: 20120403
  Serious: Yes (Death)
  Sender: FDA-Public Use
  Company Number: US-JUTA GMBH-2011-16922

PATIENT
  Age: 40 Year
  Sex: Male

DRUGS (1)
  1. TOPIRAMATE [Suspect]
     Indication: CONVULSION
     Dosage: UNKNOWN
     Route: 065

REACTIONS (3)
  - CARDIAC ARREST [None]
  - HYPERTHERMIA [None]
  - UNRESPONSIVE TO STIMULI [None]
